FAERS Safety Report 7737613-5 (Version None)
Quarter: 2011Q3

REPORT INFORMATION
  Report Type: 
  Country: None (occurrence: None)
  Receive Date: 20110908
  Receipt Date: 20110901
  Transmission Date: 20111222
  Serious: Yes (Death, Hospitalization)
  Sender: FDA-Public Use
  Company Number: DE-ELI_LILLY_AND_COMPANY-DE201011004357

PATIENT
  Sex: Female
  Weight: 65 kg

DRUGS (10)
  1. METFORMIN HCL [Concomitant]
     Indication: DIABETES MELLITUS
     Dosage: 1000 MG, UNK
     Route: 048
  2. TORSEMIDE [Concomitant]
     Dosage: 10 MG, UNK
     Route: 048
     Dates: start: 20100920
  3. BYETTA [Suspect]
     Indication: DIABETES MELLITUS
     Dosage: 10 UG, 2/D
     Route: 058
     Dates: start: 20100920, end: 20101027
  4. BENSERAZIDE [Concomitant]
     Indication: PARKINSON'S DISEASE
     Route: 048
  5. CANDESARTAN CILEXETIL [Concomitant]
     Indication: HYPERTENSION
     Dosage: 32 MG, UNK
     Dates: start: 20100920
  6. GLIMEPIRID [Concomitant]
     Indication: DIABETES MELLITUS
     Dosage: 6 MG, UNK
     Route: 048
     Dates: start: 20100920
  7. L-DOPA+BENSERAZIDE [Concomitant]
     Indication: PARKINSON'S DISEASE
     Dosage: 125 D/F, 3/D
     Route: 048
  8. METFORMIN HCL [Concomitant]
     Indication: DIABETES MELLITUS
     Dosage: 1000 MG, UNK
     Route: 048
     Dates: start: 20100920
  9. L-DOPA [Concomitant]
     Indication: PARKINSON'S DISEASE
     Route: 048
  10. CARDIOVASCULAR SYSTEM DRUGS [Concomitant]

REACTIONS (1)
  - RENAL FAILURE [None]
